FAERS Safety Report 5715693-6 (Version None)
Quarter: 2008Q2

REPORT INFORMATION
  Report Type: 
  Country: None (occurrence: None)
  Receive Date: 20080422
  Receipt Date: 20080415
  Transmission Date: 20081010
  Serious: Yes (Hospitalization, Other)
  Sender: FDA-Public Use
  Company Number: 2008SP007109

PATIENT

DRUGS (1)
  1. AFRIN [Suspect]
     Dosage: NAS
     Route: 045

REACTIONS (1)
  - PALPITATIONS [None]
